FAERS Safety Report 8202531 (Version 5)
Quarter: 2013Q3

REPORT INFORMATION
  Report Type: Spontaneous
  Country: US (occurrence: US)
  Receive Date: 20111027
  Receipt Date: 20130702
  Transmission Date: 20140515
  Serious: Yes (Other)
  Sender: FDA-Public Use
  Company Number: US-US-EMD SERONO, INC.-7090601

PATIENT
  Age: 53 Year
  Sex: Female
  Weight: 109 kg

DRUGS (5)
  1. REBIF [Suspect]
     Indication: MULTIPLE SCLEROSIS
     Route: 058
     Dates: start: 20110325, end: 201107
  2. REBIF [Suspect]
     Route: 058
     Dates: start: 201107, end: 20130504
  3. LEXAPRO [Concomitant]
     Indication: DEPRESSION
  4. IBUPROFEN [Concomitant]
     Indication: PRODUCT USED FOR UNKNOWN INDICATION
  5. OMEPRAZOLE [Concomitant]
     Indication: ABDOMINAL PAIN

REACTIONS (14)
  - Renal cyst [Not Recovered/Not Resolved]
  - Nephrolithiasis [Not Recovered/Not Resolved]
  - Gallbladder polyp [Recovered/Resolved]
  - Cholecystitis [Recovered/Resolved]
  - Malaise [Unknown]
  - Arthralgia [Unknown]
  - Arthralgia [Unknown]
  - Hepatic enzyme increased [Recovering/Resolving]
  - Depression [Recovering/Resolving]
  - Pain [Recovering/Resolving]
  - Pyrexia [Recovering/Resolving]
  - Fatigue [Recovering/Resolving]
  - Injection site erythema [Not Recovered/Not Resolved]
  - Injection site bruising [Not Recovered/Not Resolved]
